FAERS Safety Report 8266045-9 (Version None)
Quarter: 2012Q1

REPORT INFORMATION
  Report Type: 
  Country: None (occurrence: None)
  Receive Date: 20120327
  Receipt Date: 20100104
  Transmission Date: 20120608
  Serious: Yes (Other)
  Sender: FDA-Public Use
  Company Number: PHEH2009US12444

PATIENT
  Age: 87 Year
  Sex: Male

DRUGS (6)
  1. TRIAMTERENE AND HYDROCHLOROTHIAZID ^HARRIS^ (HYDROCHLOROTHIAZIDE, TRIA [Concomitant]
  2. ASPIRIN [Concomitant]
  3. FLOMAX [Concomitant]
  4. TRICOR [Concomitant]
  5. GLEEVEC [Suspect]
     Indication: CHRONIC MYELOID LEUKAEMIA
     Dosage: 300 MG/DAY, ORAL
     Route: 048
     Dates: start: 20090601, end: 20091006
  6. IRON (IRON) [Concomitant]

REACTIONS (2)
  - BLOOD IRON DECREASED [None]
  - ANAEMIA [None]
